FAERS Safety Report 4376221-3 (Version None)
Quarter: 2004Q2

REPORT INFORMATION
  Report Type: 
  Country: None (occurrence: None)
  Receive Date: 20040607
  Receipt Date: 20040319
  Transmission Date: 20050107
  Serious: Yes (Other)
  Sender: FDA-Public Use
  Company Number: US-SHR-04-023058

PATIENT

DRUGS (1)
  1. CAMPATH [Suspect]
     Indication: PANCREAS TRANSPLANT
     Dates: start: 20040101, end: 20040101

REACTIONS (2)
  - DIARRHOEA [None]
  - PYREXIA [None]
